FAERS Safety Report 4901490-8 (Version None)
Quarter: 2006Q1

REPORT INFORMATION
  Report Type: 
  Country: None (occurrence: None)
  Receive Date: 20060202
  Receipt Date: 20060125
  Transmission Date: 20060701
  Serious: Yes (Other)
  Sender: FDA-Public Use
  Company Number: HQWYE789801DEC05

PATIENT
  Age: 52 Year
  Sex: Female
  Weight: 134 kg

DRUGS (6)
  1. TACROLIMUS, CONTROL FOR SIROLIMUS (TACROLIMUS CONTROL FOR SIROLIMUS)CA [Suspect]
     Indication: PROPHYLAXIS AGAINST TRANSPLANT REJECTION
     Dosage: SEE IMAGE
     Route: 048
     Dates: start: 20041025, end: 20050713
  2. TACROLIMUS, CONTROL FOR SIROLIMUS (TACROLIMUS CONTROL FOR SIROLIMUS)CA [Suspect]
     Indication: PROPHYLAXIS AGAINST TRANSPLANT REJECTION
     Dosage: SEE IMAGE
     Route: 048
     Dates: start: 20050101
  3. ... [Suspect]
  4. CALCIUM (CALCIUM) [Concomitant]
  5. LASIX [Concomitant]
  6. MULTIVITAMINS (ASCORBIC ACID/ERGOCALCIFEROL/FOLIC ACID/NICOTINAMIDE/PA [Concomitant]

REACTIONS (3)
  - IMMUNOSUPPRESSION [None]
  - SQUAMOUS CELL CARCINOMA [None]
  - VULVAL CANCER [None]
